FAERS Safety Report 4559798-4 (Version None)
Quarter: 2005Q1

REPORT INFORMATION
  Report Type: 
  Country: None (occurrence: None)
  Receive Date: 20050107
  Receipt Date: 20041014
  Transmission Date: 20050727
  Serious: No
  Sender: FDA-Public Use
  Company Number: MK200410-0123-1

PATIENT
  Age: 40 Year
  Sex: Female
  Weight: 136.4 kg

DRUGS (1)
  1. NEUTROSPEC [Suspect]
     Indication: WHITE BLOOD CELL SCAN
     Dosage: 15 MCI, ONCE, IV
     Route: 042
     Dates: start: 20041013, end: 20041013

REACTIONS (6)
  - CHEST PAIN [None]
  - DIARRHOEA [None]
  - DIZZINESS [None]
  - HYPOTENSION [None]
  - NAUSEA [None]
  - VOMITING [None]
